FAERS Safety Report 5227577-0 (Version None)
Quarter: 2007Q1

REPORT INFORMATION
  Report Type: 
  Country: None (occurrence: None)
  Receive Date: 20070202
  Receipt Date: 20070123
  Transmission Date: 20070707
  Serious: Yes (Hospitalization)
  Sender: FDA-Public Use
  Company Number: US-JNJFOC-20061201335

PATIENT
  Sex: Female
  Weight: 167.83 kg

DRUGS (17)
  1. DURAGESIC-100 [Suspect]
     Route: 062
  2. DURAGESIC-100 [Suspect]
     Route: 062
  3. DURAGESIC-100 [Suspect]
     Indication: DRUG USE FOR UNKNOWN INDICATION
     Route: 062
  4. PERCOCET [Concomitant]
     Dosage: 10/325
     Route: 048
  5. LEXAPRO [Concomitant]
     Indication: DEPRESSION
     Route: 065
  6. TRAZODONE HCL [Concomitant]
     Indication: RELAXATION THERAPY
     Route: 048
  7. SEROQUEL [Concomitant]
     Indication: ANXIETY
     Route: 048
  8. NEURONTIN [Concomitant]
  9. NEXIUM [Concomitant]
  10. RELAFEN [Concomitant]
  11. IMITREX [Concomitant]
  12. TRAZODONE HCL [Concomitant]
  13. SINGULAIR [Concomitant]
  14. DITROPAN XL [Concomitant]
  15. FLONASE [Concomitant]
  16. PATANOL [Concomitant]
  17. ALBUTEROL [Concomitant]

REACTIONS (3)
  - ANKLE FRACTURE [None]
  - DRUG INEFFECTIVE [None]
  - FALL [None]
